FAERS Safety Report 4512941-5 (Version None)
Quarter: 2004Q4

REPORT INFORMATION
  Report Type: 
  Country: None (occurrence: None)
  Receive Date: 20041124
  Receipt Date: 20041108
  Transmission Date: 20050328
  Serious: Yes (Hospitalization)
  Sender: FDA-Public Use
  Company Number: PHEH2004US12044

PATIENT
  Age: 83 Year
  Sex: Male
  Weight: 71.2147 kg

DRUGS (6)
  1. VISUDYNE [Suspect]
     Indication: MACULAR DEGENERATION
     Dates: start: 20041104, end: 20041104
  2. NITRGLYCERIN TRANSDERMAL SYSTEM [Concomitant]
  3. WARFARIN SODIUM [Concomitant]
  4. CARDIZEM CD [Concomitant]
  5. TENORMIN [Concomitant]
  6. MEVACOR [Concomitant]

REACTIONS (1)
  - MYOCARDIAL INFARCTION [None]
